FAERS Safety Report 9486792 (Version 2)
Quarter: 2013Q3

REPORT INFORMATION
  Report Type: Report from Study
  Country: CA (occurrence: CA)
  Receive Date: 20130829
  Receipt Date: 20130829
  Transmission Date: 20140515
  Serious: Yes (Other)
  Sender: FDA-Public Use
  Company Number: PHHY2013CA077045

PATIENT
  Sex: Female

DRUGS (5)
  1. ACLASTA [Suspect]
     Indication: OSTEOPOROSIS
     Dosage: UNK UKN, ONCE A YEAR
     Route: 042
     Dates: start: 20100617
  2. ACLASTA [Suspect]
     Dosage: UNK UKN,  ONCE A YEAR
     Route: 042
     Dates: start: 20110624
  3. ACLASTA [Suspect]
     Dosage: UNK UKN,  ONCE A YEAR
     Route: 042
     Dates: start: 20120716
  4. ACLASTA [Suspect]
     Dosage: UNK UKN, ONCE A YEAR
     Route: 042
     Dates: start: 20130605
  5. ZOPLICONE [Concomitant]
     Dosage: 5 MG, UNK

REACTIONS (3)
  - Osteonecrosis of jaw [Recovering/Resolving]
  - Gingivitis [Recovering/Resolving]
  - Inappropriate schedule of drug administration [Unknown]
